FAERS Safety Report 8505251-2 (Version None)
Quarter: 2012Q3

REPORT INFORMATION
  Report Type: 
  Country: None (occurrence: None)
  Receive Date: 20120712
  Receipt Date: 20120704
  Transmission Date: 20120928
  Serious: Yes (Other)
  Sender: FDA-Public Use
  Company Number: US-PFIZER INC-9819055

PATIENT
  Age: 61 Year
  Sex: Male

DRUGS (2)
  1. VIAGRA [Suspect]
     Indication: ERECTILE DYSFUNCTION
     Dosage: 50 MG, AS NEEDED
     Route: 048
     Dates: start: 19980502
  2. CALAN SR [Suspect]
     Indication: HYPERTENSION
     Route: 048
     Dates: end: 19980501

REACTIONS (2)
  - SYNCOPE [None]
  - HYPERTENSION [None]
